FAERS Safety Report 5921379-5 (Version None)
Quarter: 2008Q4

REPORT INFORMATION
  Report Type: 
  Country: None (occurrence: None)
  Receive Date: 20081014
  Receipt Date: 20081001
  Transmission Date: 20090506
  Serious: Yes (Other)
  Sender: FDA-Public Use
  Company Number: 2008SP020142

PATIENT
  Age: 43 Year
  Sex: Male

DRUGS (1)
  1. ASMANEX (MOMETASONE FUROATE (ORAL) (220 MCG) [Suspect]
     Indication: ASTHMA
     Dosage: 1 DF;QOD;PO
     Route: 048
     Dates: start: 20070101, end: 20080901

REACTIONS (2)
  - CHORIORETINOPATHY [None]
  - SCOTOMA [None]
